FAERS Safety Report 17498183 (Version 1)
Quarter: 2020Q1

REPORT INFORMATION
  Report Type: Spontaneous
  Country: BR (occurrence: BR)
  Receive Date: 20200304
  Receipt Date: 20200304
  Transmission Date: 20200409
  Serious: Yes (Other)
  Sender: FDA-Public Use
  Company Number: BR-JNJFOC-20200231632

PATIENT
  Sex: Female
  Weight: 77 kg

DRUGS (9)
  1. TECNOMET                           /00113801/ [Concomitant]
     Active Substance: METHOTREXATE
  2. RIVOTRIL [Concomitant]
     Active Substance: CLONAZEPAM
  3. SIMPONI [Suspect]
     Active Substance: GOLIMUMAB
     Indication: RHEUMATOID ARTHRITIS
     Route: 058
     Dates: end: 20200107
  4. AMLODIPINE [Concomitant]
     Active Substance: AMLODIPINE BESYLATE
  5. PAROXETINE. [Concomitant]
     Active Substance: PAROXETINE
  6. ATENOLOL. [Concomitant]
     Active Substance: ATENOLOL
  7. MIRTAZAPINE. [Concomitant]
     Active Substance: MIRTAZAPINE
  8. CALCIUM W/COLECALCIFEROL [Concomitant]
     Active Substance: CALCIUM\CHOLECALCIFEROL
  9. VITAMIN C [Concomitant]
     Active Substance: ASCORBIC ACID

REACTIONS (3)
  - Memory impairment [Unknown]
  - Rheumatoid arthritis [Unknown]
  - Tooth infection [Unknown]
